FAERS Safety Report 6044379-6 (Version None)
Quarter: 2009Q1

REPORT INFORMATION
  Report Type: 
  Country: None (occurrence: None)
  Receive Date: 20090120
  Receipt Date: 20081209
  Transmission Date: 20090719
  Serious: No
  Sender: FDA-Public Use
  Company Number: US-BAYER-200814819BCC

PATIENT
  Sex: Male

DRUGS (1)
  1. MIDOL [Suspect]
     Indication: ANALGESIA
     Dates: start: 20081209

REACTIONS (2)
  - HOT FLUSH [None]
  - HYPERHIDROSIS [None]
